FAERS Safety Report 8982465 (Version 2)
Quarter: 2013Q1

REPORT INFORMATION
  Report Type: Spontaneous
  Country: AU (occurrence: AU)
  Receive Date: 20121222
  Receipt Date: 20130222
  Transmission Date: 20140127
  Serious: Yes (Other)
  Sender: FDA-Public Use
  Company Number: AU-B.I. PHARMACEUTICALS,INC./RIDGEFIELD-2012-AU-02005AU

PATIENT
  Age: 84 Year
  Sex: Male
  Weight: 74 kg

DRUGS (3)
  1. PRADAXA [Suspect]
     Indication: ATRIAL FIBRILLATION
     Dosage: 220 MG
     Dates: start: 20111019, end: 20111125
  2. SOMAC [Concomitant]
  3. COVERSYL [Concomitant]

REACTIONS (2)
  - Renal cell carcinoma [Unknown]
  - Haematuria [Recovered/Resolved with Sequelae]
